FAERS Safety Report 6277847-2 (Version None)
Quarter: 2009Q3

REPORT INFORMATION
  Report Type: 
  Country: None (occurrence: None)
  Receive Date: 20090717
  Receipt Date: 20090717
  Transmission Date: 20100115
  Serious: Yes (Life-Threatening, Hospitalization)
  Sender: FDA-Public Use
  Company Number: None

PATIENT
  Age: 54 Year
  Sex: Female
  Weight: 86.637 kg

DRUGS (1)
  1. HYDROXYCHLOROQUINE SUL TABS 200 MG WATSON [Suspect]
     Indication: LICHEN PLANUS
     Dosage: 1 TABLET BID
     Dates: start: 20080701, end: 20081201

REACTIONS (3)
  - BLOOD BLISTER [None]
  - CONTUSION [None]
  - PLATELET COUNT DECREASED [None]
